FAERS Safety Report 4876954-6 (Version None)
Quarter: 2006Q1

REPORT INFORMATION
  Report Type: 
  Country: None (occurrence: None)
  Receive Date: 20060110
  Receipt Date: 20060103
  Transmission Date: 20060701
  Serious: Yes (Hospitalization)
  Sender: FDA-Public Use
  Company Number: 2006AP00005

PATIENT
  Age: 91 Year
  Sex: Female

DRUGS (11)
  1. TENORMIN [Suspect]
     Route: 048
     Dates: start: 20050701
  2. AMLOR [Suspect]
     Route: 048
     Dates: start: 20050701
  3. PREVISCAN [Suspect]
     Route: 048
  4. PREVISCAN [Suspect]
     Route: 048
     Dates: start: 20050601
  5. PROZAC [Suspect]
     Route: 048
     Dates: start: 20050908
  6. XATRAL [Suspect]
     Route: 048
     Dates: start: 20050701
  7. MOPRAL [Concomitant]
     Dates: start: 20050101
  8. FORLAX [Concomitant]
     Dates: start: 20050701
  9. TARDYFERON [Concomitant]
     Dates: start: 20050701
  10. OROCAL [Concomitant]
     Dates: start: 20050701
  11. ACTONEL [Concomitant]

REACTIONS (7)
  - ATRIAL FIBRILLATION [None]
  - FALL [None]
  - HEART RATE INCREASED [None]
  - HYPOPROTHROMBINAEMIA [None]
  - HYPOTENSION [None]
  - INTERNATIONAL NORMALISED RATIO INCREASED [None]
  - RENAL FAILURE [None]
